FAERS Safety Report 7305905-X (Version None)
Quarter: 2011Q1

REPORT INFORMATION
  Report Type: 
  Country: None (occurrence: None)
  Receive Date: 20110210
  Receipt Date: 20110131
  Transmission Date: 20110831
  Serious: Yes (Other)
  Sender: FDA-Public Use
  Company Number: LEO-2011-00128

PATIENT
  Sex: Female
  Weight: 66 kg

DRUGS (3)
  1. INNOHEP [Suspect]
     Indication: PULMONARY EMBOLISM
     Dosage: 10000 IU (10000 IU, 1 IN 1 D), SUBCUTANEOUS
     Route: 058
  2. INNOHEP [Suspect]
     Indication: DEEP VEIN THROMBOSIS
     Dosage: 10000 IU (10000 IU, 1 IN 1 D), SUBCUTANEOUS
     Route: 058
  3. TARCEVA [Concomitant]

REACTIONS (3)
  - PULMONARY EMBOLISM [None]
  - DEEP VEIN THROMBOSIS [None]
  - UNDERDOSE [None]
